FAERS Safety Report 8784728 (Version 1)
Quarter: 2012Q4

REPORT INFORMATION
  Report Type: 
  Country: BR (occurrence: BR)
  Receive Date: 20120914
  Receipt Date: 20120914
  Transmission Date: 20130627
  Serious: Yes (Other)
  Sender: FDA-Public Use
  Company Number: BR-ELI_LILLY_AND_COMPANY-BR201204000206

PATIENT
  Age: 81 Year
  Sex: Female
  Weight: 47 kg

DRUGS (8)
  1. FORTEO [Suspect]
     Indication: OSTEOPOROSIS
     Dosage: UNK, unknown
     Route: 058
  2. PANTOPRAZOLE [Concomitant]
     Dosage: UNK, unknown
     Route: 065
  3. LEVOID [Concomitant]
     Dosage: UNK, unknown
     Route: 065
  4. SPIRONOLACTON [Concomitant]
     Dosage: UNK, unknown
     Route: 065
  5. SIMVASTATIN [Concomitant]
     Dosage: UNK, unknown
     Route: 065
  6. CYMBALTA [Concomitant]
     Dosage: UNK, unknown
     Route: 065
  7. SOMALGIN [Concomitant]
     Dosage: UNK, unknown
     Route: 065
  8. MIRTAZAPIN [Concomitant]
     Dosage: UNK, unknown
     Route: 065

REACTIONS (5)
  - Fall [Recovering/Resolving]
  - Rib fracture [Recovering/Resolving]
  - Spinal deformity [Recovering/Resolving]
  - Spinal pain [Unknown]
  - Pain [Unknown]
